FAERS Safety Report 6270840-5 (Version None)
Quarter: 2009Q3

REPORT INFORMATION
  Report Type: 
  Country: None (occurrence: None)
  Receive Date: 20090715
  Receipt Date: 20090709
  Transmission Date: 20100115
  Serious: Yes (Other)
  Sender: FDA-Public Use
  Company Number: A0796291A

PATIENT
  Sex: Female

DRUGS (1)
  1. UREA PEROXIDE [Suspect]

REACTIONS (5)
  - AURICULAR SWELLING [None]
  - DEAFNESS TRANSITORY [None]
  - EAR DISCOMFORT [None]
  - ERYTHEMA [None]
  - TINNITUS [None]
